FAERS Safety Report 8609231-8 (Version None)
Quarter: 2012Q3

REPORT INFORMATION
  Report Type: 
  Country: None (occurrence: None)
  Receive Date: 20120821
  Receipt Date: 20120814
  Transmission Date: 20120928
  Serious: Yes (Other)
  Sender: FDA-Public Use
  Company Number: GB-JNJFOC-20120809260

PATIENT

DRUGS (2)
  1. DARUNAVIR ETHANOLATE [Suspect]
     Indication: ANTIVIRAL PROPHYLAXIS
     Route: 065
  2. RITONAVIR [Suspect]
     Indication: ANTIVIRAL PROPHYLAXIS
     Route: 065

REACTIONS (9)
  - WEIGHT INCREASED [None]
  - SKIN REACTION [None]
  - VIRAL LOAD INCREASED [None]
  - TOXICITY TO VARIOUS AGENTS [None]
  - NAUSEA [None]
  - DIARRHOEA [None]
  - VOMITING [None]
  - NERVOUS SYSTEM DISORDER [None]
  - ABDOMINAL PAIN UPPER [None]
